FAERS Safety Report 12461374 (Version 2)
Quarter: 2016Q2

REPORT INFORMATION
  Report Type: Spontaneous
  Country: CA (occurrence: CA)
  Receive Date: 20160613
  Receipt Date: 20160623
  Transmission Date: 20160815
  Serious: Yes (Hospitalization)
  Sender: FDA-Public Use
  Company Number: CA-UNITED THERAPEUTICS-UNT-2016-009245

PATIENT
  Age: 11 Year
  Sex: Female

DRUGS (1)
  1. REMODULIN [Suspect]
     Active Substance: TREPROSTINIL
     Indication: PULMONARY ARTERIAL HYPERTENSION
     Dosage: UNK UNK, CONTINUING
     Route: 041
     Dates: start: 20151024

REACTIONS (8)
  - Intracranial aneurysm [Unknown]
  - Subarachnoid haemorrhage [Unknown]
  - International normalised ratio increased [Unknown]
  - Headache [Unknown]
  - Rhinovirus infection [Unknown]
  - Facial paralysis [Unknown]
  - Aneurysm [Recovering/Resolving]
  - Vomiting [Unknown]

NARRATIVE: CASE EVENT DATE: 20160607
